FAERS Safety Report 5803733-5 (Version None)
Quarter: 2008Q3

REPORT INFORMATION
  Report Type: 
  Country: None (occurrence: None)
  Receive Date: 20080708
  Receipt Date: 20080702
  Transmission Date: 20090109
  Serious: Yes (Hospitalization, Disabling)
  Sender: FDA-Public Use
  Company Number: PHEH2000US07469

PATIENT
  Sex: Male
  Weight: 96.8 kg

DRUGS (2)
  1. ZOLEDRONATE T29581++BM [Suspect]
     Indication: METASTASES TO BONE
     Dosage: 8 MG
     Route: 042
     Dates: start: 20000501, end: 20000706
  2. AREDIA [Concomitant]
     Indication: HYPERCALCAEMIA OF MALIGNANCY
     Dosage: 90 MG, TIW
     Route: 042
     Dates: start: 20000728

REACTIONS (2)
  - CARDIAC FAILURE CONGESTIVE [None]
  - RENAL FAILURE CHRONIC [None]
